FAERS Safety Report 9280647 (Version 1)
Quarter: 2013Q2

REPORT INFORMATION
  Report Type: Spontaneous
  Country: US (occurrence: None)
  Receive Date: 20130508
  Receipt Date: 20130508
  Transmission Date: 20140414
  Serious: Yes (Other)
  Sender: FDA-Public Use
  Company Number: None

PATIENT
  Age: 20 Year
  Sex: Male

DRUGS (1)
  1. TUBERSOL [Suspect]
     Indication: TUBERCULIN TEST
     Dosage: 0.1ML ONCE ID
     Route: 023
     Dates: start: 20130501, end: 20130501

REACTIONS (3)
  - Syncope [None]
  - Muscle rigidity [None]
  - Convulsion [None]
